FAERS Safety Report 7208775-3 (Version None)
Quarter: 2010Q4

REPORT INFORMATION
  Report Type: 
  Country: None (occurrence: None)
  Receive Date: 20101222
  Receipt Date: 20101216
  Transmission Date: 20110411
  Serious: Yes (Other)
  Sender: FDA-Public Use
  Company Number: 2010SP051408

PATIENT
  Sex: Female

DRUGS (3)
  1. IMPLANON (68 MG) [Suspect]
     Indication: CONTRACEPTION
     Dosage: 68 MG; SBDE
     Route: 059
     Dates: start: 20100224, end: 20101208
  2. CLARITIN [Concomitant]
  3. IBUPROFEN [Concomitant]

REACTIONS (5)
  - CONDITION AGGRAVATED [None]
  - INFLUENZA LIKE ILLNESS [None]
  - MENTAL DISORDER [None]
  - MOOD SWINGS [None]
  - TREATMENT NONCOMPLIANCE [None]
